FAERS Safety Report 10161812 (Version 1)
Quarter: 2014Q2

REPORT INFORMATION
  Report Type: Spontaneous
  Country: JP (occurrence: None)
  Receive Date: 20140507
  Receipt Date: 20140507
  Transmission Date: 20141212
  Serious: Yes (Other)
  Sender: FDA-Public Use
  Company Number: ABR_01622_2014

PATIENT
  Sex: Male

DRUGS (3)
  1. ERYTHROCIN [Suspect]
     Indication: FOETAL EXPOSURE TIMING UNSPECIFIED
     Route: 064
     Dates: start: 19990520, end: 19990522
  2. RITODRIONE HYDROCHLORIDE [Concomitant]
  3. AMPICILLIN [Concomitant]

REACTIONS (8)
  - Oligohydramnios [None]
  - Premature rupture of membranes [None]
  - Threatened labour [None]
  - Low birth weight baby [None]
  - Premature baby [None]
  - Intraventricular haemorrhage neonatal [None]
  - Cerebral palsy [None]
  - Foetal exposure during pregnancy [None]
